FAERS Safety Report 5688971-7 (Version None)
Quarter: 2008Q1

REPORT INFORMATION
  Report Type: 
  Country: None (occurrence: None)
  Receive Date: 20080331
  Receipt Date: 20061213
  Transmission Date: 20080703
  Serious: Yes (Death, Life-Threatening, Hospitalization, Other)
  Sender: FDA-Public Use
  Company Number: JP-ROCHE-470932

PATIENT
  Age: 64 Year
  Sex: Female
  Weight: 58 kg

DRUGS (4)
  1. XELODA [Suspect]
     Indication: BREAST CANCER METASTATIC
     Dosage: TWO WEEKS ADMINISTRATION FOLLOWED BY ONE WEEK REST.
     Route: 065
     Dates: start: 20060307, end: 20060612
  2. TAXOTERE [Suspect]
     Indication: BREAST CANCER METASTATIC
     Route: 042
     Dates: start: 20060314, end: 20060314
  3. TAXOTERE [Suspect]
     Route: 042
     Dates: start: 20060403, end: 20060424
  4. GRAN [Concomitant]
     Route: 058
     Dates: start: 20060502, end: 20060502

REACTIONS (11)
  - DIARRHOEA [None]
  - DISEASE PROGRESSION [None]
  - DYSGEUSIA [None]
  - EATING DISORDER [None]
  - ERYTHEMA [None]
  - HYPONATRAEMIA [None]
  - PIGMENTATION DISORDER [None]
  - PNEUMONIA [None]
  - PYREXIA [None]
  - SKIN DISORDER [None]
  - WHITE BLOOD CELL COUNT DECREASED [None]
